FAERS Safety Report 14006995 (Version 1)
Quarter: 2017Q3

REPORT INFORMATION
  Report Type: Spontaneous
  Country: US (occurrence: US)
  Receive Date: 20170922
  Receipt Date: 20170922
  Transmission Date: 20171128
  Serious: Yes (Life-Threatening, Hospitalization, Other)
  Sender: FDA-Public Use
  Company Number: None

PATIENT
  Age: 32 Year
  Sex: Female
  Weight: 75.6 kg

DRUGS (1)
  1. TAXOL [Suspect]
     Active Substance: PACLITAXEL
     Indication: BREAST CANCER
     Route: 042
     Dates: start: 20170919, end: 20170919

REACTIONS (11)
  - Dyspnoea [None]
  - Lip swelling [None]
  - Eye swelling [None]
  - Abdominal pain upper [None]
  - Head discomfort [None]
  - Swelling face [None]
  - Anaphylactic shock [None]
  - Skin burning sensation [None]
  - Heart rate increased [None]
  - Chest pain [None]
  - Erythema [None]

NARRATIVE: CASE EVENT DATE: 20170919
